FAERS Safety Report 4536911-6 (Version None)
Quarter: 2004Q4

REPORT INFORMATION
  Report Type: 
  Country: None (occurrence: None)
  Receive Date: 20041220
  Receipt Date: 20041207
  Transmission Date: 20050328
  Serious: Yes (Hospitalization)
  Sender: FDA-Public Use
  Company Number: MK200401-0144-2

PATIENT
  Age: 48 Year
  Sex: Female

DRUGS (3)
  1. METHYLPHENIDATE HCL [Suspect]
     Dosage: 10 MG, TID
  2. VENLAFAXINE HCL [Suspect]
     Dosage: 600 MG/DAY FOR THREE WEEKS PRIOR TO EVENT
  3. ZOLPIDEM [Suspect]
     Dosage: 10 MG/DAY FOR FOUR WEEKS PRIOR TO EVENT

REACTIONS (10)
  - BACK PAIN [None]
  - CONVULSION [None]
  - DEPRESSED LEVEL OF CONSCIOUSNESS [None]
  - DRUG WITHDRAWAL SYNDROME [None]
  - INSOMNIA [None]
  - MUSCLE CRAMP [None]
  - OVERDOSE [None]
  - POSTICTAL STATE [None]
  - SELF-MEDICATION [None]
  - SEROTONIN SYNDROME [None]
